FAERS Safety Report 20491417 (Version 2)
Quarter: 2022Q1

REPORT INFORMATION
  Report Type: Other
  Country: IL (occurrence: None)
  Receive Date: 20220218
  Receipt Date: 20220226
  Transmission Date: 20220423
  Serious: Yes (Death, Hospitalization, Other)
  Sender: FDA-Public Use
  Company Number: IL-ROCHE-3022827

PATIENT
  Age: 63 Year
  Sex: Female

DRUGS (7)
  1. OCREVUS [Suspect]
     Active Substance: OCRELIZUMAB
     Indication: Relapsing multiple sclerosis
     Dosage: 600MG Q6M
     Route: 042
     Dates: start: 20180516
  2. BACLOFEN [Concomitant]
     Active Substance: BACLOFEN
  3. MODAFINIL [Concomitant]
     Active Substance: MODAFINIL
  4. CYMBALTA [Concomitant]
     Active Substance: DULOXETINE HYDROCHLORIDE
  5. DETRUSITOL [Concomitant]
     Active Substance: TOLTERODINE TARTRATE
  6. RAMIPRIL [Concomitant]
     Active Substance: RAMIPRIL
  7. CANNABIS SATIVA SUBSP. INDICA TOP [Concomitant]
     Active Substance: CANNABIS SATIVA SUBSP. INDICA TOP

REACTIONS (12)
  - Asthenia [Unknown]
  - Muscular weakness [Unknown]
  - Coronavirus test positive [Unknown]
  - COVID-19 pneumonia [Unknown]
  - Pneumonia [Unknown]
  - Upper gastrointestinal haemorrhage [Unknown]
  - Death [Fatal]
  - Hyperventilation [Unknown]
  - Dyspnoea [Unknown]
  - Cardiac failure [Unknown]
  - Right ventricular dilatation [Unknown]
  - Cardiac disorder [Unknown]

NARRATIVE: CASE EVENT DATE: 20220104
